FAERS Safety Report 4548538-0 (Version None)
Quarter: 2004Q4

REPORT INFORMATION
  Report Type: 
  Country: None (occurrence: None)
  Receive Date: 20041227
  Receipt Date: 20041116
  Transmission Date: 20050328
  Serious: Yes (Hospitalization)
  Sender: FDA-Public Use
  Company Number: 04P-163-0280722-00

PATIENT
  Age: 48 Year
  Sex: Female

DRUGS (15)
  1. HUMIRA [Suspect]
     Indication: RHEUMATOID ARTHRITIS
     Dosage: 40 MG, 1 IN 2 WK, SUBCUTANEOUS
     Route: 058
     Dates: start: 20040501
  2. AMITRIPTYLINE [Suspect]
     Indication: PARAESTHESIA
     Dates: start: 20041001, end: 20041001
  3. NPH INSULIN [Concomitant]
  4. FEXOFENADINE HYDROCHLORIDE [Concomitant]
  5. ACTOS [Concomitant]
  6. CRESTOR [Concomitant]
  7. ACARBOSE [Concomitant]
  8. LISINOPRIL [Concomitant]
  9. GLUCOPHAGE [Concomitant]
  10. HYDROXYCHLOROQUINE PHOSPHATE [Concomitant]
  11. FUROSEMIDE [Concomitant]
  12. CORTISONE [Concomitant]
  13. METOPROLOL TARTRATE [Concomitant]
  14. COMBIVENT [Concomitant]
  15. LEXAPRO [Concomitant]

REACTIONS (3)
  - PARAESTHESIA [None]
  - THROMBOSIS [None]
  - UNEVALUABLE EVENT [None]
